FAERS Safety Report 25421441 (Version 2)
Quarter: 2025Q2

REPORT INFORMATION
  Report Type: Report from Study
  Country: US (occurrence: US)
  Receive Date: 20250611
  Receipt Date: 20250620
  Transmission Date: 20250716
  Serious: Yes (Death, Hospitalization, Other)
  Sender: SUNOVION
  Company Number: US-SMPA-2025SPA006970

PATIENT

DRUGS (14)
  1. ORGOVYX [Suspect]
     Active Substance: RELUGOLIX
     Indication: Prostate cancer
     Dosage: 360 MG, SINGLE
     Route: 048
     Dates: start: 20240410, end: 20240410
  2. ORGOVYX [Suspect]
     Active Substance: RELUGOLIX
     Dosage: 120 MG, QD
     Route: 048
     Dates: start: 20240411
  3. LACTULOSE [Concomitant]
     Active Substance: LACTULOSE
  4. LISINOPRIL [Concomitant]
     Active Substance: LISINOPRIL
  5. MIRALAX [Concomitant]
     Active Substance: POLYETHYLENE GLYCOL 3350
  6. PROPRANOLOL HYDROCHLORIDE [Concomitant]
     Active Substance: PROPRANOLOL HYDROCHLORIDE
  7. TRADJENTA [Concomitant]
     Active Substance: LINAGLIPTIN
  8. ASPIRIN [Concomitant]
     Active Substance: ASPIRIN
  9. BENZTROPINE MESYLATE [Concomitant]
     Active Substance: BENZTROPINE MESYLATE
  10. DEPAKOTE ER [Concomitant]
     Active Substance: DIVALPROEX SODIUM
  11. FANAPT [Concomitant]
     Active Substance: ILOPERIDONE
  12. FANAPT [Concomitant]
     Active Substance: ILOPERIDONE
  13. GLIPIZIDE [Concomitant]
     Active Substance: GLIPIZIDE
  14. ENSURE [Concomitant]
     Active Substance: AMINO ACIDS\DEXTROSE\ELECTROLYTES NOS\SOYBEAN OIL\VITAMINS
     Route: 065

REACTIONS (3)
  - Death [Fatal]
  - Pneumonia [Unknown]
  - Ulcer haemorrhage [Unknown]
